FAERS Safety Report 5331155-2 (Version None)
Quarter: 2007Q2

REPORT INFORMATION
  Report Type: 
  Country: None (occurrence: None)
  Receive Date: 20070522
  Receipt Date: 20070521
  Transmission Date: 20071010
  Serious: Yes (Disabling)
  Sender: FDA-Public Use
  Company Number: FI-BRISTOL-MYERS SQUIBB COMPANY-12986428

PATIENT
  Age: 58 Year
  Sex: Male

DRUGS (1)
  1. NEFADAR [Suspect]
     Indication: DEPRESSION
     Dosage: INITIAL DOSE WAS LOWER THEN INCREASED TO 500 MG/DAY
     Route: 048
     Dates: start: 20000101, end: 20000901

REACTIONS (1)
  - POLYNEUROPATHY [None]
